FAERS Safety Report 13954472 (Version 1)
Quarter: 2017Q3

REPORT INFORMATION
  Report Type: Spontaneous
  Country: US (occurrence: US)
  Receive Date: 20170910
  Receipt Date: 20170910
  Transmission Date: 20171128
  Serious: Yes (Other)
  Sender: FDA-Public Use
  Company Number: None

PATIENT
  Age: 36 Year
  Sex: Female
  Weight: 63 kg

DRUGS (2)
  1. PRENATAL VITAMINS [Concomitant]
     Active Substance: VITAMINS
  2. SPIRONOLACTONE 50MG AMNEAL PHARMACY [Suspect]
     Active Substance: SPIRONOLACTONE
     Indication: ACNE
     Dosage: ?          QUANTITY:90 TABLET(S);?TWICE A DAY ORAL
     Route: 048
     Dates: start: 20170908, end: 20170909

REACTIONS (5)
  - Arrhythmia [None]
  - Dyspnoea [None]
  - Gastrointestinal disorder [None]
  - Product substitution issue [None]
  - Wheezing [None]

NARRATIVE: CASE EVENT DATE: 20170908
